FAERS Safety Report 13874022 (Version 2)
Quarter: 2018Q3

REPORT INFORMATION
  Report Type: Spontaneous
  Country: US (occurrence: US)
  Receive Date: 20170816
  Receipt Date: 20180730
  Transmission Date: 20181010
  Serious: No
  Sender: FDA-Public Use
  Company Number: US-ENDO PHARMACEUTICALS INC-2016-005840

PATIENT
  Age: 62 Year
  Sex: Female
  Weight: 76.64 kg

DRUGS (1)
  1. SUMAVEL DOSEPRO [Suspect]
     Active Substance: SUMATRIPTAN SUCCINATE
     Indication: MIGRAINE
     Dosage: AS NEEDED INTO THE THIGH
     Route: 065

REACTIONS (6)
  - Incorrect dose administered by device [Unknown]
  - Accidental exposure to product [Unknown]
  - Device malfunction [Unknown]
  - Underdose [Unknown]
  - Injection site haemorrhage [Recovered/Resolved]
  - Drug dose omission [Unknown]

NARRATIVE: CASE EVENT DATE: 20160918
